FAERS Safety Report 10246480 (Version 3)
Quarter: 2014Q3

REPORT INFORMATION
  Report Type: Spontaneous
  Country: FR (occurrence: FR)
  Receive Date: 20140619
  Receipt Date: 20140731
  Transmission Date: 20150326
  Serious: Yes (Hospitalization, Other)
  Sender: FDA-Public Use
  Company Number: FR-JNJFOC-20140518251

PATIENT
  Age: 59 Year
  Sex: Male
  Weight: 80 kg

DRUGS (4)
  1. XARELTO [Suspect]
     Active Substance: RIVAROXABAN
     Indication: EMBOLISM VENOUS
     Route: 048
     Dates: start: 20140522, end: 20140523
  2. OMEPRAZOLE. [Concomitant]
     Active Substance: OMEPRAZOLE
     Route: 065
     Dates: start: 20140517, end: 20140518
  3. BI-PROFENID [Concomitant]
     Active Substance: KETOPROFEN
     Route: 065
     Dates: start: 20140517, end: 20140518
  4. XARELTO [Suspect]
     Active Substance: RIVAROXABAN
     Indication: DEEP VEIN THROMBOSIS POSTOPERATIVE
     Route: 048
     Dates: start: 20140522, end: 20140523

REACTIONS (4)
  - Haematuria [Recovered/Resolved]
  - Pelvic pain [Unknown]
  - Urethral haemorrhage [Unknown]
  - Urinary retention [Unknown]

NARRATIVE: CASE EVENT DATE: 20140523
